FAERS Safety Report 4357098-9 (Version None)
Quarter: 2004Q2

REPORT INFORMATION
  Report Type: 
  Country: None (occurrence: None)
  Receive Date: 20040507
  Receipt Date: 20040427
  Transmission Date: 20050107
  Serious: Yes (Death)
  Sender: FDA-Public Use
  Company Number: FR-SHR-04-024616

PATIENT
  Age: 36 Year
  Sex: Male

DRUGS (4)
  1. REFLUDAN [Suspect]
     Indication: HEPARIN-INDUCED THROMBOCYTOPENIA
     Dosage: SEE IMAGE
     Route: 042
     Dates: start: 20040422, end: 20040422
  2. REFLUDAN [Suspect]
     Indication: HEPARIN-INDUCED THROMBOCYTOPENIA
     Dosage: SEE IMAGE
     Route: 042
     Dates: start: 20040422, end: 20040423
  3. DANAPAROID (DANAPAROID) [Concomitant]
  4. HEPARIN [Concomitant]

REACTIONS (1)
  - DISSEMINATED INTRAVASCULAR COAGULATION [None]
